FAERS Safety Report 8302535-8 (Version None)
Quarter: 2012Q2

REPORT INFORMATION
  Report Type: 
  Country: None (occurrence: None)
  Receive Date: 20120420
  Receipt Date: 20120413
  Transmission Date: 20120825
  Serious: Yes (Other)
  Sender: FDA-Public Use
  Company Number: US-ROCHE-1059591

PATIENT
  Sex: Female

DRUGS (6)
  1. BONIVA [Suspect]
     Indication: OSTEITIS DEFORMANS
  2. FOSAMAX [Suspect]
     Indication: OSTEITIS DEFORMANS
  3. FOSAMAX [Suspect]
     Indication: OSTEOPOROSIS
     Dates: start: 20020301, end: 20071201
  4. BONIVA [Suspect]
     Indication: OSTEOPOROSIS
     Dates: start: 20071201
  5. FOSAMAX [Suspect]
     Indication: OSTEOPENIA
  6. BONIVA [Suspect]
     Indication: OSTEOPENIA

REACTIONS (3)
  - EMOTIONAL DISTRESS [None]
  - FEMUR FRACTURE [None]
  - ANXIETY [None]
